FAERS Safety Report 18422895 (Version 1)
Quarter: 2020Q4

REPORT INFORMATION
  Report Type: Spontaneous
  Country: US (occurrence: US)
  Receive Date: 20201024
  Receipt Date: 20201024
  Transmission Date: 20210114
  Serious: No
  Sender: FDA-Public Use
  Company Number: US-ACCORD-192009

PATIENT
  Age: 74 Year
  Sex: Male

DRUGS (1)
  1. AZACITIDINE. [Suspect]
     Active Substance: AZACITIDINE
     Indication: MYELODYSPLASTIC SYNDROME
     Route: 042
     Dates: start: 20200710, end: 20200710

REACTIONS (4)
  - Swelling [Not Recovered/Not Resolved]
  - Catheter site erythema [Not Recovered/Not Resolved]
  - Catheter site swelling [Not Recovered/Not Resolved]
  - Erythema [Not Recovered/Not Resolved]

NARRATIVE: CASE EVENT DATE: 20200712
